FAERS Safety Report 9263891 (Version 3)
Quarter: 2013Q3

REPORT INFORMATION
  Report Type: Spontaneous
  Country: US (occurrence: US)
  Receive Date: 20130430
  Receipt Date: 20130708
  Transmission Date: 20140515
  Serious: Yes (Life-Threatening, Hospitalization)
  Sender: FDA-Public Use
  Company Number: US-BAYER-2013-051796

PATIENT
  Age: 40 Year
  Sex: Female
  Weight: 99.77 kg

DRUGS (21)
  1. BEYAZ [Suspect]
     Dosage: UNK
     Dates: start: 201103, end: 20110601
  2. YAZ [Suspect]
     Indication: ACNE
     Dosage: UNK
     Dates: start: 2010, end: 2011
  3. YAZ [Suspect]
     Indication: PREMENSTRUAL DYSPHORIC DISORDER
  4. YAZ [Suspect]
     Indication: PREMENSTRUAL SYNDROME
  5. YAZ [Suspect]
     Indication: MENSTRUAL CYCLE MANAGEMENT
  6. OCELLA [Suspect]
     Indication: ACNE
     Dosage: UNK
     Dates: start: 2010, end: 2011
  7. OCELLA [Suspect]
     Indication: PREMENSTRUAL DYSPHORIC DISORDER
  8. OCELLA [Suspect]
     Indication: PREMENSTRUAL SYNDROME
  9. OCELLA [Suspect]
     Indication: MENSTRUAL CYCLE MANAGEMENT
  10. YASMIN [Suspect]
     Indication: ACNE
     Dosage: UNK
     Dates: start: 2010, end: 2011
  11. YASMIN [Suspect]
     Indication: PREMENSTRUAL DYSPHORIC DISORDER
  12. YASMIN [Suspect]
     Indication: PREMENSTRUAL SYNDROME
  13. YASMIN [Suspect]
     Indication: MENSTRUAL CYCLE MANAGEMENT
  14. GLUCOPHAGE [Concomitant]
  15. NAPROSYN [Concomitant]
     Dosage: 500 MG, BID
     Route: 048
  16. METFORMIN [Concomitant]
  17. DOXYCYCLINE [Concomitant]
     Dosage: 100 MG, BID
     Route: 048
  18. FLAGYL [Concomitant]
     Dosage: 500 MG, BID
     Route: 048
  19. ZOLPIDEM [Concomitant]
     Indication: INSOMNIA
     Dosage: 10 MG, IF NEEDED
  20. TYLENOL [PARACETAMOL] [Concomitant]
  21. HYDROCODONE/ACETAMINOPHEN [Concomitant]
     Dosage: UNK

REACTIONS (1)
  - Pulmonary embolism [Recovered/Resolved]
